APPROVED DRUG PRODUCT: LEVULAN
Active Ingredient: AMINOLEVULINIC ACID HYDROCHLORIDE
Strength: 20%
Dosage Form/Route: SOLUTION;TOPICAL
Application: N020965 | Product #001
Applicant: SUN PHARMACEUTICAL INDUSTRIES INC
Approved: Dec 3, 1999 | RLD: Yes | RS: Yes | Type: RX

PATENTS:
Patent 11690914 | Expires: Jan 12, 2038
Patent 11077192 | Expires: Jan 12, 2038
Patent 12290700 | Expires: Oct 13, 2036
Patent 11697028 | Expires: Oct 13, 2036
Patent 11446512 | Expires: Jan 17, 2037
Patent 11179574 | Expires: Oct 13, 2036
Patent 12296011 | Expires: Jan 12, 2038
Patent 10357567 | Expires: Jan 12, 2038
Patent 11571478 | Expires: Jan 12, 2038
Patent 11135293 | Expires: Jan 12, 2038